FAERS Safety Report 9032615 (Version 2)
Quarter: 2015Q1

REPORT INFORMATION
  Report Type: Spontaneous
  Country: FR (occurrence: None)
  Receive Date: 20130109
  Receipt Date: 20150202
  Transmission Date: 20150721
  Serious: Yes (Hospitalization)
  Sender: FDA-Public Use
  Company Number: 143672

PATIENT
  Age: 66 Year
  Sex: Male
  Weight: 68.95 kg

DRUGS (6)
  1. ARACYTINE [Suspect]
     Active Substance: CYTARABINE
     Indication: ACUTE MYELOID LEUKAEMIA
     Dosage: DAY 1 TO DAY 7
     Dates: start: 20090221, end: 20090227
  2. LOXEN (NICARDIPINE HYDROCHLORIDE) (UNKNOWN) (NICARDIPINE HYDROCHLORIDE) [Concomitant]
  3. MYLOTARG [Suspect]
     Active Substance: GEMTUZUMAB OZOGAMICIN
     Indication: ACUTE MYELOID LEUKAEMIA
     Dosage: DAY 1, 4 AND 7 (CYCLICAL)
     Route: 041
     Dates: start: 20090221, end: 20090227
  4. CERUBIDINE [Suspect]
     Active Substance: DAUNORUBICIN HYDROCHLORIDE
     Indication: ACUTE MYELOID LEUKAEMIA
     Dosage: CYCLICAL
     Route: 041
     Dates: start: 20090221, end: 20090223
  5. CORDARONE (AMIODARONE HYDROCHLORIDE) (UNKNOWN) (AMIODARONE HYDROCHLORIDE) [Concomitant]
  6. MOPRAL (OMEPRAZOLE) (UNKNOWN)( (OMEPRAZOLE) [Concomitant]

REACTIONS (5)
  - Bone marrow failure [None]
  - Enterococcal sepsis [None]
  - Hyperthermia [None]
  - Streptococcal sepsis [None]
  - Acute myeloid leukaemia [None]

NARRATIVE: CASE EVENT DATE: 20090325
